FAERS Safety Report 6241856-X (Version None)
Quarter: 2009Q2

REPORT INFORMATION
  Report Type: 
  Country: None (occurrence: None)
  Receive Date: 20090623
  Receipt Date: 20090622
  Transmission Date: 20091009
  Serious: Yes (Other)
  Sender: FDA-Public Use
  Company Number: US-PFIZER INC-2009175490

PATIENT
  Sex: Male
  Weight: 90.703 kg

DRUGS (1)
  1. GEODON [Suspect]
     Dates: start: 20090205

REACTIONS (6)
  - ABNORMAL BEHAVIOUR [None]
  - CARDIAC DISORDER [None]
  - HEADACHE [None]
  - HYPOTHYROIDISM [None]
  - INSOMNIA [None]
  - MEMORY IMPAIRMENT [None]
